FAERS Safety Report 5466361-X (Version None)
Quarter: 2007Q3

REPORT INFORMATION
  Report Type: 
  Country: None (occurrence: None)
  Receive Date: 20070920
  Receipt Date: 20070830
  Transmission Date: 20080115
  Serious: Yes (Disabling)
  Sender: FDA-Public Use
  Company Number: DAB-2007-00003

PATIENT
  Age: 59 Year
  Sex: Female

DRUGS (6)
  1. PACLITAXEL [Suspect]
     Indication: OVARIAN CANCER
     Dates: start: 20060101
  2. AVASTIN [Suspect]
     Indication: OVARIAN CANCER
     Dosage: 0.7143 MG/KG, 1 IN 1 WEEKS
     Dates: start: 20060101
  3. ETOPOSIDE [Concomitant]
  4. CARBORPLATIN (CARBOPLATIN) [Concomitant]
  5. LIPOSOMAL DOXORUBICIN (DOXORUBICIN) [Concomitant]
  6. TOPOTECAN (TOPOTECAN) [Concomitant]

REACTIONS (7)
  - BURNING SENSATION [None]
  - DISEASE PROGRESSION [None]
  - INTESTINAL OBSTRUCTION [None]
  - NAIL DISCOLOURATION [None]
  - OSTEOARTHRITIS [None]
  - OVARIAN CANCER RECURRENT [None]
  - SKIN EXFOLIATION [None]
